FAERS Safety Report 16961786 (Version 6)
Quarter: 2020Q1

REPORT INFORMATION
  Report Type: Report from Study
  Country: CO (occurrence: CO)
  Receive Date: 20191025
  Receipt Date: 20200121
  Transmission Date: 20200409
  Serious: Yes (Life-Threatening, Hospitalization, Other)
  Sender: FDA-Public Use
  Company Number: CO-BRISTOL-MYERS SQUIBB COMPANY-BMS-2019-102867

PATIENT
  Age: 75 Year
  Sex: Female

DRUGS (1)
  1. NIVOLUMAB [Suspect]
     Active Substance: NIVOLUMAB
     Indication: LUNG NEOPLASM MALIGNANT
     Dosage: 240 MILLIGRAM, Q2WK
     Route: 042
     Dates: start: 20190815, end: 20191031

REACTIONS (10)
  - Pleural effusion [Recovering/Resolving]
  - Dyspnoea [Recovering/Resolving]
  - Malignant neoplasm progression [Unknown]
  - Catheter site haemorrhage [Recovering/Resolving]
  - General physical health deterioration [Recovering/Resolving]
  - Hyperhidrosis [Recovered/Resolved]
  - Constipation [Unknown]
  - Asthenia [Recovered/Resolved]
  - Fatigue [Recovering/Resolving]
  - Chest pain [Recovering/Resolving]

NARRATIVE: CASE EVENT DATE: 20191017
